FAERS Safety Report 21388254 (Version 2)
Quarter: 2022Q4

REPORT INFORMATION
  Report Type: Report from Study
  Country: PH (occurrence: PH)
  Receive Date: 20220928
  Receipt Date: 20221003
  Transmission Date: 20230113
  Serious: Yes (Life-Threatening, Hospitalization)
  Sender: FDA-Public Use
  Company Number: PH-PFIZER INC-PV202200069891

PATIENT
  Age: 58 Year
  Sex: Male
  Weight: 54.4 kg

DRUGS (21)
  1. LINEZOLID [Suspect]
     Active Substance: LINEZOLID
     Indication: Tuberculosis
     Dosage: 1200 MG
     Route: 048
     Dates: start: 20220824
  2. LINEZOLID [Suspect]
     Active Substance: LINEZOLID
     Dosage: 600 MG
     Route: 048
     Dates: start: 20220914, end: 20220921
  3. DELAMANID [Suspect]
     Active Substance: DELAMANID
     Indication: Tuberculosis
     Dosage: 300 MG (CAPSULE)
     Route: 048
     Dates: start: 20220824
  4. DELAMANID [Suspect]
     Active Substance: DELAMANID
     Dosage: 300 MG (CAPSULE)
     Route: 048
     Dates: start: 20220920, end: 20220921
  5. LEVOFLOXACIN [Suspect]
     Active Substance: LEVOFLOXACIN
     Indication: Tuberculosis
     Dosage: 1000 MG (TABLET)
     Route: 048
     Dates: start: 20220824
  6. LEVOFLOXACIN [Suspect]
     Active Substance: LEVOFLOXACIN
     Dosage: 1000 MG (TABLET)
     Route: 048
     Dates: start: 20220920, end: 20220921
  7. CLOFAZIMINE [Suspect]
     Active Substance: CLOFAZIMINE
     Indication: Tuberculosis
     Dosage: 100 MG (CAPSULE)
     Route: 048
     Dates: start: 20220824
  8. CLOFAZIMINE [Suspect]
     Active Substance: CLOFAZIMINE
     Dosage: 100 MG (CAPSULE)
     Route: 048
     Dates: start: 20220920, end: 20220921
  9. BEDAQUILINE [Suspect]
     Active Substance: BEDAQUILINE
     Indication: Tuberculosis
     Dosage: 200 MG (TABLETS)
     Route: 048
     Dates: start: 20220824
  10. BEDAQUILINE [Suspect]
     Active Substance: BEDAQUILINE
     Dosage: 200 MG (TABLETS)
     Route: 048
     Dates: start: 20220920, end: 20220921
  11. GLICLAZIDE [Concomitant]
     Active Substance: GLICLAZIDE
     Dosage: 60MG/TAB 1 TAB OD
     Route: 048
     Dates: start: 2017
  12. SITAGLIPTIN [Concomitant]
     Active Substance: SITAGLIPTIN
     Dosage: 5MG/TAB 1 TAB OD
     Route: 048
     Dates: start: 20220831
  13. LANSOPRAZOLE [Concomitant]
     Active Substance: LANSOPRAZOLE
     Indication: Abdominal discomfort
     Dosage: 30MG/CAP 1 CAP OD
     Route: 048
     Dates: start: 20220915, end: 20220922
  14. POTASSIUM CHLORIDE [Concomitant]
     Active Substance: POTASSIUM CHLORIDE
     Dosage: 600MG/TAB 1 TAB BID X 3DAYS
     Route: 048
     Dates: start: 20220921, end: 20220923
  15. ASPIRIN [Concomitant]
     Active Substance: ASPIRIN
     Indication: Acute myocardial infarction
     Dosage: 80 MG/TAB 1 TAB OD
     Dates: start: 20220922
  16. CLOPIDOGREL [Concomitant]
     Active Substance: CLOPIDOGREL BISULFATE
     Indication: Acute myocardial infarction
     Dosage: 75MG/TAB 1 TAB OD
     Dates: start: 20220922, end: 20220923
  17. TICAGRELOR [Concomitant]
     Active Substance: TICAGRELOR
     Indication: Acute myocardial infarction
     Dosage: 90MG/TAB 1 TAB BID
     Dates: start: 20220924
  18. ATORVASTATIN [Concomitant]
     Active Substance: ATORVASTATIN
     Indication: Acute myocardial infarction
     Dosage: 80MG/TAB OD
     Dates: start: 20220922
  19. OMEPRAZOLE [Concomitant]
     Active Substance: OMEPRAZOLE
     Indication: Acute myocardial infarction
     Dosage: 40MG/TAB
     Dates: start: 20220922
  20. ENOXAPARIN [Concomitant]
     Active Substance: ENOXAPARIN
     Dosage: 0.6CC SQ Q12
     Route: 058
     Dates: start: 20220923, end: 20220924
  21. TRIMETAZIDINE [Concomitant]
     Active Substance: TRIMETAZIDINE
     Dosage: 35MG/TAB 1 TAB OD
     Route: 048
     Dates: start: 20220923

REACTIONS (1)
  - Myocardial infarction [Recovered/Resolved with Sequelae]

NARRATIVE: CASE EVENT DATE: 20220922
